FAERS Safety Report 22295140 (Version 1)
Quarter: 2023Q2

REPORT INFORMATION
  Report Type: Spontaneous
  Country: FR (occurrence: FR)
  Receive Date: 20230508
  Receipt Date: 20230508
  Transmission Date: 20230722
  Serious: Yes (Other)
  Sender: FDA-Public Use
  Company Number: None

PATIENT
  Age: 73 Year
  Sex: Female
  Weight: 70 kg

DRUGS (1)
  1. BETAMETHASONE DIPROPIONATE\BETAMETHASONE SODIUM PHOSPHATE [Suspect]
     Active Substance: BETAMETHASONE DIPROPIONATE\BETAMETHASONE SODIUM PHOSPHATE
     Indication: Muscle rupture
     Dosage: 1 INJECTION /DAY FOR ONE DAY
     Route: 030
     Dates: start: 20221226

REACTIONS (4)
  - Abdominal pain upper [Not Recovered/Not Resolved]
  - Hot flush [Not Recovered/Not Resolved]
  - Memory impairment [Not Recovered/Not Resolved]
  - Blood glucose increased [Not Recovered/Not Resolved]

NARRATIVE: CASE EVENT DATE: 20221226
